FAERS Safety Report 10640830 (Version 1)
Quarter: 2014Q4

REPORT INFORMATION
  Report Type: Spontaneous
  Country: US (occurrence: None)
  Receive Date: 20141208
  Receipt Date: 20141208
  Transmission Date: 20150529
  Serious: No
  Sender: FDA-Public Use
  Company Number: None

PATIENT

DRUGS (5)
  1. INSULIN U 100 INSULIN [Suspect]
     Active Substance: INSULIN HUMAN
  2. ISOPHANE INSULIN [Suspect]
     Active Substance: INSULIN NOS
  3. NPH INSULIN [Suspect]
     Active Substance: INSULIN BEEF
  4. INSULIN U 500 INSULIN [Suspect]
     Active Substance: INSULIN HUMAN
  5. INSULIN 70/30 [Suspect]
     Active Substance: INSULIN HUMAN

REACTIONS (5)
  - Product name confusion [None]
  - Wrong drug administered [None]
  - Blood glucose decreased [None]
  - Drug prescribing error [None]
  - Blood glucose increased [None]
